FAERS Safety Report 8906402 (Version 1)
Quarter: 2012Q4

REPORT INFORMATION
  Report Type: Spontaneous
  Country: US (occurrence: None)
  Receive Date: 20121108
  Receipt Date: 20121108
  Transmission Date: 20130627
  Serious: Yes (Hospitalization, Other)
  Sender: FDA-Public Use
  Company Number: AUR-APL-2012-04771

PATIENT
  Age: 65 Year
  Sex: Female

DRUGS (2)
  1. DONEPEZIL HYDROCHLORIDE [Suspect]
     Indication: ALZHEIMER^S DISEASE
  2. CLOPIDOGREL [Concomitant]

REACTIONS (10)
  - Insomnia [None]
  - Mania [None]
  - Abnormal behaviour [None]
  - Agitation [None]
  - Memory impairment [None]
  - Executive dysfunction [None]
  - Encephalomalacia [None]
  - Cerebrovascular disorder [None]
  - Pressure of speech [None]
  - Delusion of grandeur [None]
